FAERS Safety Report 16732180 (Version 1)
Quarter: 2019Q3

REPORT INFORMATION
  Report Type: Spontaneous
  Country: GB (occurrence: GB)
  Receive Date: 20190822
  Receipt Date: 20190822
  Transmission Date: 20191005
  Serious: Yes (Disabling, Other)
  Sender: FDA-Public Use
  Company Number: GB-ALLERGAN-1934383US

PATIENT
  Sex: Female

DRUGS (9)
  1. MEBEVERINE HYDROCHLORIDE [Concomitant]
     Active Substance: MEBEVERINE HYDROCHLORIDE
  2. CITALOPRAM HYDROBROMIDE - BP [Suspect]
     Active Substance: CITALOPRAM HYDROBROMIDE
     Indication: DEPRESSION SUICIDAL
     Dosage: 20 MG, QD
     Route: 048
     Dates: start: 20190501, end: 20190503
  3. MEFENAMIC ACID. [Concomitant]
     Active Substance: MEFENAMIC ACID
     Indication: DYSMENORRHOEA
  4. MULTIVITAMIN [Concomitant]
     Active Substance: VITAMINS
  5. PARACETAMOL [Concomitant]
     Active Substance: ACETAMINOPHEN
  6. PROBIOTIC [Concomitant]
     Active Substance: PROBIOTICS NOS
     Indication: IRRITABLE BOWEL SYNDROME
  7. NAPROXEN. [Concomitant]
     Active Substance: NAPROXEN
     Indication: DYSMENORRHOEA
  8. OMEPRAZOLE. [Concomitant]
     Active Substance: OMEPRAZOLE
     Dates: start: 20190501
  9. OMEGA-3-ACID ETHYL ESTER [Concomitant]
     Active Substance: OMEGA-3-ACID ETHYL ESTERS

REACTIONS (9)
  - Paraesthesia [Recovered/Resolved]
  - Headache [Recovered/Resolved]
  - Insomnia [Recovering/Resolving]
  - Abnormal dreams [Recovering/Resolving]
  - Muscular weakness [Recovering/Resolving]
  - Photophobia [Not Recovered/Not Resolved]
  - Nausea [Recovered/Resolved]
  - Dizziness [Recovered/Resolved]
  - Mydriasis [Not Recovered/Not Resolved]

NARRATIVE: CASE EVENT DATE: 20190501
